FAERS Safety Report 9512271 (Version 1)
Quarter: 2013Q3

REPORT INFORMATION
  Report Type: Spontaneous
  Country: US (occurrence: US)
  Receive Date: 20130910
  Receipt Date: 20130910
  Transmission Date: 20140515
  Serious: No
  Sender: FDA-Public Use
  Company Number: US-SANOFI-AVENTIS-2013SA076617

PATIENT
  Age: 82 Year
  Sex: Female

DRUGS (2)
  1. AVAPRO [Suspect]
     Indication: BLOOD PRESSURE
     Route: 048
  2. AVAPRO [Suspect]
     Indication: BLOOD PRESSURE
     Dosage: LATEST REFILL
     Route: 048

REACTIONS (1)
  - Feeling abnormal [Not Recovered/Not Resolved]
